FAERS Safety Report 23193141 (Version 2)
Quarter: 2023Q4

REPORT INFORMATION
  Report Type: Spontaneous
  Country: US (occurrence: US)
  Receive Date: 20231116
  Receipt Date: 20231122
  Transmission Date: 20240110
  Serious: Yes (Life-Threatening, Other)
  Sender: FDA-Public Use
  Company Number: US-HOSPIRA-1324038

PATIENT
  Age: 5 Day
  Sex: Female
  Weight: 3.34 kg

DRUGS (1)
  1. FENTANYL CITRATE [Suspect]
     Active Substance: FENTANYL CITRATE
     Indication: Analgesic therapy
     Dosage: TOTAL OF 3 BOLUSES (EACH OF 3 UG) WITH 10MIN. LOCKOUT PERIOD BETWEEN DOSES
     Route: 040

REACTIONS (7)
  - Off label use [Recovered/Resolved]
  - Muscle rigidity [Recovered/Resolved]
  - Neonatal respiratory failure [Recovered/Resolved]
  - Neonatal hypoxia [Unknown]
  - Obstructive airways disorder [Unknown]
  - Neonatal dyspnoea [Unknown]
  - Cyanosis neonatal [Unknown]
